FAERS Safety Report 5162059-6 (Version None)
Quarter: 2006Q4

REPORT INFORMATION
  Report Type: 
  Country: None (occurrence: None)
  Receive Date: 20061121
  Receipt Date: 20061107
  Transmission Date: 20070319
  Serious: Yes (Other)
  Sender: FDA-Public Use
  Company Number: DE-2006-034881

PATIENT
  Age: 56 Year
  Sex: Female

DRUGS (1)
  1. MAGNEVIST [Suspect]
     Indication: NUCLEAR MAGNETIC RESONANCE IMAGING
     Dosage: 20 ML, 1 DOSE, UNK
     Dates: start: 20061010, end: 20061010

REACTIONS (4)
  - CHILLS [None]
  - HAEMODIALYSIS [None]
  - PYREXIA [None]
  - SEPSIS [None]
